FAERS Safety Report 25773626 (Version 2)
Quarter: 2025Q4

REPORT INFORMATION
  Report Type: Spontaneous
  Country: JP (occurrence: JP)
  Receive Date: 20250908
  Receipt Date: 20251029
  Transmission Date: 20260118
  Serious: No
  Sender: ARDELYX
  Company Number: JP-ARDELYX-2025ARDX006733

PATIENT
  Age: 6 Decade
  Sex: Male

DRUGS (3)
  1. TENAPANOR HYDROCHLORIDE [Suspect]
     Active Substance: TENAPANOR HYDROCHLORIDE
     Indication: Product used for unknown indication
     Dosage: UNK, BID
     Route: 048
  2. TENAPANOR HYDROCHLORIDE [Suspect]
     Active Substance: TENAPANOR HYDROCHLORIDE
     Dosage: UNK, QD
     Route: 048
  3. TENAPANOR HYDROCHLORIDE [Suspect]
     Active Substance: TENAPANOR HYDROCHLORIDE
     Dosage: UNK, BID
     Route: 048

REACTIONS (2)
  - Blood calcium decreased [Unknown]
  - Diarrhoea [Unknown]
